FAERS Safety Report 8317612-5 (Version None)
Quarter: 2012Q2

REPORT INFORMATION
  Report Type: 
  Country: None (occurrence: None)
  Receive Date: 20120427
  Receipt Date: 20090619
  Transmission Date: 20120825
  Serious: No
  Sender: FDA-Public Use
  Company Number: US-TEVA-2009006807

PATIENT
  Age: 29 Year
  Sex: Male
  Weight: 86.26 kg

DRUGS (3)
  1. BUPROPION HYDROCHLORIDE [Concomitant]
  2. ABILIFY [Concomitant]
  3. NUVIGIL [Suspect]
     Indication: SLEEP APNOEA SYNDROME
     Dosage: 150 MILLIGRAM;
     Route: 048
     Dates: start: 20090609, end: 20090609

REACTIONS (3)
  - ASTHENOPIA [None]
  - FEELING ABNORMAL [None]
  - DIZZINESS [None]
